FAERS Safety Report 6590411-0 (Version None)
Quarter: 2010Q1

REPORT INFORMATION
  Report Type: 
  Country: None (occurrence: None)
  Receive Date: 20100219
  Receipt Date: 20100211
  Transmission Date: 20100710
  Serious: Yes (Death, Hospitalization)
  Sender: FDA-Public Use
  Company Number: FR-ROCHE-681893

PATIENT
  Age: 62 Year
  Sex: Female

DRUGS (15)
  1. HERCEPTIN [Suspect]
     Dosage: CYCLE 1
     Route: 042
     Dates: start: 20090929
  2. HERCEPTIN [Suspect]
     Dosage: CYCLE 2
     Route: 042
     Dates: start: 20091020
  3. TAXOTERE [Suspect]
     Dosage: CYCLE 1
     Route: 042
     Dates: start: 20090930
  4. TAXOTERE [Suspect]
     Dosage: CYCLE 2
     Route: 042
     Dates: start: 20091020
  5. FORADIL [Concomitant]
  6. MIFLASONE [Concomitant]
  7. EPTAVIT [Concomitant]
  8. ALPRAZOLAM [Concomitant]
  9. SINGULAIR [Concomitant]
  10. AUGMENTIN [Concomitant]
  11. NASACORT [Concomitant]
  12. SOTALOL [Concomitant]
  13. RAMIPRIL [Concomitant]
  14. VASTAREL [Concomitant]
  15. FEC REGIMEN [Concomitant]
     Dosage: 03 CYCLES

REACTIONS (3)
  - COLITIS ISCHAEMIC [None]
  - LEUKOPENIA [None]
  - SEPTIC SHOCK [None]
